FAERS Safety Report 7293859-4 (Version None)
Quarter: 2011Q1

REPORT INFORMATION
  Report Type: 
  Country: None (occurrence: None)
  Receive Date: 20110203
  Receipt Date: 20110118
  Transmission Date: 20110831
  Serious: Yes (Other)
  Sender: FDA-Public Use
  Company Number: 011088

PATIENT
  Sex: Male
  Weight: 81.8 kg

DRUGS (7)
  1. ASPIRIN /01428701/ [Concomitant]
  2. UROXATRAL [Concomitant]
  3. MIRALAX [Concomitant]
  4. LORTAB [Suspect]
     Indication: PAIN
     Dosage: (10/500MG; 1 TABLET FOUR TIMES A DAY ORAL)
     Route: 048
  5. ZETIA [Concomitant]
  6. COZAAR [Concomitant]
  7. PREVACID [Concomitant]

REACTIONS (7)
  - DYSPHAGIA [None]
  - RASH PRURITIC [None]
  - LIP SWELLING [None]
  - PRURITUS GENERALISED [None]
  - SWOLLEN TONGUE [None]
  - URTICARIA [None]
  - FEELING ABNORMAL [None]
